FAERS Safety Report 16702397 (Version 1)
Quarter: 2019Q3

REPORT INFORMATION
  Report Type: Spontaneous
  Country: US (occurrence: US)
  Receive Date: 20190814
  Receipt Date: 20190814
  Transmission Date: 20191004
  Serious: No
  Sender: FDA-Public Use
  Company Number: US-MYLANLABS-2019M1072898

PATIENT
  Sex: Female
  Weight: 82 kg

DRUGS (3)
  1. FENTANYL. [Suspect]
     Active Substance: FENTANYL
     Indication: CSF PRESSURE INCREASED
  2. FENTANYL. [Suspect]
     Active Substance: FENTANYL
     Indication: ILL-DEFINED DISORDER
     Dosage: UNK UNK, Q2D
     Route: 062
  3. FENTANYL. [Suspect]
     Active Substance: FENTANYL
     Indication: JOINT DISLOCATION

REACTIONS (4)
  - Nausea [Recovered/Resolved]
  - Drug ineffective [Recovered/Resolved]
  - Wrong technique in product usage process [Unknown]
  - Product adhesion issue [Recovered/Resolved]
